FAERS Safety Report 4375102-9 (Version None)
Quarter: 2004Q2

REPORT INFORMATION
  Report Type: 
  Country: None (occurrence: None)
  Receive Date: 20040604
  Receipt Date: 20040521
  Transmission Date: 20050107
  Serious: Yes (Hospitalization)
  Sender: FDA-Public Use
  Company Number: K200400764

PATIENT
  Age: 74 Year
  Sex: Male

DRUGS (3)
  1. ALTACE [Suspect]
     Dosage: ORAL
     Route: 048
     Dates: end: 20040401
  2. ALDACTONE [Suspect]
     Dosage: ORAL
     Route: 048
     Dates: end: 20040401
  3. TEGRETOL [Suspect]
     Dosage: ORAL
     Route: 048
     Dates: end: 20040401

REACTIONS (4)
  - BRADYCARDIA [None]
  - HYPERKALAEMIA [None]
  - MALAISE [None]
  - SINOATRIAL BLOCK [None]
